FAERS Safety Report 6107289-1 (Version None)
Quarter: 2009Q1

REPORT INFORMATION
  Report Type: 
  Country: None (occurrence: None)
  Receive Date: 20090309
  Receipt Date: 20090225
  Transmission Date: 20090719
  Serious: Yes (Other)
  Sender: FDA-Public Use
  Company Number: DE-BAYER-200824895GPV

PATIENT
  Age: 65 Year
  Sex: Female

DRUGS (7)
  1. AVELOX [Suspect]
     Indication: PNEUMONIA
     Route: 065
     Dates: start: 20080611, end: 20080617
  2. METRONIDAZOLE [Suspect]
     Indication: DRUG USE FOR UNKNOWN INDICATION
     Route: 065
     Dates: start: 20080617, end: 20080622
  3. PREDNISOLONE [Suspect]
     Indication: DRUG USE FOR UNKNOWN INDICATION
     Route: 065
  4. AZITHROMYCIN [Suspect]
     Indication: DRUG USE FOR UNKNOWN INDICATION
  5. TOBI [Suspect]
     Indication: DRUG USE FOR UNKNOWN INDICATION
     Route: 065
     Dates: start: 20080623
  6. METAMIZOLE [Suspect]
     Indication: DRUG USE FOR UNKNOWN INDICATION
     Route: 065
  7. AMPICILLIN AND SULBACTAM [Suspect]
     Indication: DRUG USE FOR UNKNOWN INDICATION
     Route: 065
     Dates: start: 20080617, end: 20080622

REACTIONS (9)
  - DRUG ERUPTION [None]
  - GENITAL INFECTION FUNGAL [None]
  - HAEMORRHAGIC DIATHESIS [None]
  - OEDEMA [None]
  - PRURITUS [None]
  - RASH [None]
  - SKIN DISORDER [None]
  - SKIN EXFOLIATION [None]
  - SKIN ULCER [None]
